FAERS Safety Report 9905321 (Version 2)
Quarter: 2014Q1

REPORT INFORMATION
  Report Type: Spontaneous
  Country: IT (occurrence: IT)
  Receive Date: 20140218
  Receipt Date: 20140218
  Transmission Date: 20141002
  Serious: Yes (Other)
  Sender: FDA-Public Use
  Company Number: IT-ACTAVIS-2013-23763

PATIENT
  Age: 45 Year
  Sex: Female
  Weight: 65 kg

DRUGS (2)
  1. QUETIAPINE (UNKNOWN) [Suspect]
     Indication: IMPULSIVE BEHAVIOUR
     Dosage: 1200 MG, DAILY
     Route: 048
     Dates: start: 20131001, end: 20131010
  2. VENLAFAXINE [Concomitant]
     Indication: DEPRESSION
     Dosage: 225 MG, UNK
     Route: 048
     Dates: start: 20130912, end: 20131205

REACTIONS (4)
  - Sedation [Recovered/Resolved]
  - Confusional state [Recovered/Resolved]
  - Faecal incontinence [Recovered/Resolved]
  - Urinary incontinence [Recovered/Resolved]
